FAERS Safety Report 25920822 (Version 1)
Quarter: 2025Q4

REPORT INFORMATION
  Report Type: Spontaneous
  Country: EU (occurrence: EU)
  Receive Date: 20251014
  Receipt Date: 20251014
  Transmission Date: 20260118
  Serious: Yes (Other)
  Sender: MYLAN
  Company Number: None

PATIENT
  Age: 77 Year
  Sex: Male
  Weight: 86 kg

DRUGS (40)
  1. IMATINIB [Suspect]
     Active Substance: IMATINIB
     Indication: Chronic myeloid leukaemia
     Dosage: 400 MILLIGRAM, QD
     Dates: start: 20160502, end: 20200303
  2. IMATINIB [Suspect]
     Active Substance: IMATINIB
     Dosage: 400 MILLIGRAM, QD
     Dates: start: 20160502, end: 20200303
  3. IMATINIB [Suspect]
     Active Substance: IMATINIB
     Dosage: 400 MILLIGRAM, QD
     Route: 048
     Dates: start: 20160502, end: 20200303
  4. IMATINIB [Suspect]
     Active Substance: IMATINIB
     Dosage: 400 MILLIGRAM, QD
     Route: 048
     Dates: start: 20160502, end: 20200303
  5. IMATINIB [Suspect]
     Active Substance: IMATINIB
     Dosage: 300 MILLIGRAM, QD
     Dates: start: 20200304, end: 20220718
  6. IMATINIB [Suspect]
     Active Substance: IMATINIB
     Dosage: 300 MILLIGRAM, QD
     Dates: start: 20200304, end: 20220718
  7. IMATINIB [Suspect]
     Active Substance: IMATINIB
     Dosage: 300 MILLIGRAM, QD
     Route: 048
     Dates: start: 20200304, end: 20220718
  8. IMATINIB [Suspect]
     Active Substance: IMATINIB
     Dosage: 300 MILLIGRAM, QD
     Route: 048
     Dates: start: 20200304, end: 20220718
  9. IMATINIB [Suspect]
     Active Substance: IMATINIB
     Dosage: 400 MILLIGRAM, QD
     Dates: start: 20220719, end: 20250113
  10. IMATINIB [Suspect]
     Active Substance: IMATINIB
     Dosage: 400 MILLIGRAM, QD
     Dates: start: 20220719, end: 20250113
  11. IMATINIB [Suspect]
     Active Substance: IMATINIB
     Dosage: 400 MILLIGRAM, QD
     Route: 048
     Dates: start: 20220719, end: 20250113
  12. IMATINIB [Suspect]
     Active Substance: IMATINIB
     Dosage: 400 MILLIGRAM, QD
     Route: 048
     Dates: start: 20220719, end: 20250113
  13. IMATINIB [Suspect]
     Active Substance: IMATINIB
     Dosage: 400 MILLIGRAM, QD
     Dates: start: 20250117, end: 20250526
  14. IMATINIB [Suspect]
     Active Substance: IMATINIB
     Dosage: 400 MILLIGRAM, QD
     Dates: start: 20250117, end: 20250526
  15. IMATINIB [Suspect]
     Active Substance: IMATINIB
     Dosage: 400 MILLIGRAM, QD
     Route: 048
     Dates: start: 20250117, end: 20250526
  16. IMATINIB [Suspect]
     Active Substance: IMATINIB
     Dosage: 400 MILLIGRAM, QD
     Route: 048
     Dates: start: 20250117, end: 20250526
  17. IMATINIB [Suspect]
     Active Substance: IMATINIB
     Dosage: 400 MILLIGRAM, QD
     Dates: start: 20250716
  18. IMATINIB [Suspect]
     Active Substance: IMATINIB
     Dosage: 400 MILLIGRAM, QD
     Route: 048
     Dates: start: 20250716
  19. IMATINIB [Suspect]
     Active Substance: IMATINIB
     Dosage: 400 MILLIGRAM, QD
     Dates: start: 20250716
  20. IMATINIB [Suspect]
     Active Substance: IMATINIB
     Dosage: 400 MILLIGRAM, QD
     Route: 048
     Dates: start: 20250716
  21. ZESTORETIC [Concomitant]
     Active Substance: HYDROCHLOROTHIAZIDE\LISINOPRIL
     Indication: Hypertension
     Dosage: 1 DOSAGE FORM
  22. ZESTORETIC [Concomitant]
     Active Substance: HYDROCHLOROTHIAZIDE\LISINOPRIL
     Dosage: 1 DOSAGE FORM
     Route: 048
  23. ZESTORETIC [Concomitant]
     Active Substance: HYDROCHLOROTHIAZIDE\LISINOPRIL
     Dosage: 1 DOSAGE FORM
     Route: 048
  24. ZESTORETIC [Concomitant]
     Active Substance: HYDROCHLOROTHIAZIDE\LISINOPRIL
     Dosage: 1 DOSAGE FORM
  25. HYDREA [Concomitant]
     Active Substance: HYDROXYUREA
     Indication: Chronic myeloid leukaemia
     Dosage: 1 DOSAGE FORM
     Dates: start: 20160331, end: 20180518
  26. HYDREA [Concomitant]
     Active Substance: HYDROXYUREA
     Dosage: 1 DOSAGE FORM
     Route: 048
     Dates: start: 20160331, end: 20180518
  27. HYDREA [Concomitant]
     Active Substance: HYDROXYUREA
     Dosage: 1 DOSAGE FORM
     Route: 048
     Dates: start: 20160331, end: 20180518
  28. HYDREA [Concomitant]
     Active Substance: HYDROXYUREA
     Dosage: 1 DOSAGE FORM
     Dates: start: 20160331, end: 20180518
  29. ALLOPURINOL [Concomitant]
     Active Substance: ALLOPURINOL
     Indication: Hyperuricaemia
     Dosage: 300 MILLIGRAM, QD
     Dates: start: 20160414, end: 20190618
  30. ALLOPURINOL [Concomitant]
     Active Substance: ALLOPURINOL
     Dosage: 300 MILLIGRAM, QD
     Dates: start: 20160414, end: 20190618
  31. ALLOPURINOL [Concomitant]
     Active Substance: ALLOPURINOL
     Dosage: 300 MILLIGRAM, QD
     Route: 048
     Dates: start: 20160414, end: 20190618
  32. ALLOPURINOL [Concomitant]
     Active Substance: ALLOPURINOL
     Dosage: 300 MILLIGRAM, QD
     Route: 048
     Dates: start: 20160414, end: 20190618
  33. ALLOPURINOL [Concomitant]
     Active Substance: ALLOPURINOL
     Dosage: 300 MILLIGRAM, QD
     Dates: start: 20210517, end: 20240315
  34. ALLOPURINOL [Concomitant]
     Active Substance: ALLOPURINOL
     Dosage: 300 MILLIGRAM, QD
     Dates: start: 20210517, end: 20240315
  35. ALLOPURINOL [Concomitant]
     Active Substance: ALLOPURINOL
     Dosage: 300 MILLIGRAM, QD
     Route: 048
     Dates: start: 20210517, end: 20240315
  36. ALLOPURINOL [Concomitant]
     Active Substance: ALLOPURINOL
     Dosage: 300 MILLIGRAM, QD
     Route: 048
     Dates: start: 20210517, end: 20240315
  37. ALLOPURINOL [Concomitant]
     Active Substance: ALLOPURINOL
     Dosage: 200 MILLIGRAM, QD
     Dates: start: 20240316
  38. ALLOPURINOL [Concomitant]
     Active Substance: ALLOPURINOL
     Dosage: 200 MILLIGRAM, QD
     Route: 048
     Dates: start: 20240316
  39. ALLOPURINOL [Concomitant]
     Active Substance: ALLOPURINOL
     Dosage: 200 MILLIGRAM, QD
     Dates: start: 20240316
  40. ALLOPURINOL [Concomitant]
     Active Substance: ALLOPURINOL
     Dosage: 200 MILLIGRAM, QD
     Route: 048
     Dates: start: 20240316

REACTIONS (3)
  - Toxic skin eruption [Recovered/Resolved]
  - Chronic kidney disease [Not Recovered/Not Resolved]
  - Nail discolouration [Recovered/Resolved]

NARRATIVE: CASE EVENT DATE: 20161018
